FAERS Safety Report 24235775 (Version 1)
Quarter: 2024Q3

REPORT INFORMATION
  Report Type: Spontaneous
  Country: US (occurrence: US)
  Receive Date: 20240822
  Receipt Date: 20240822
  Transmission Date: 20241016
  Serious: No
  Sender: Day One Biopharmaceuticals
  Company Number: US-DAY ONE BIOPHARMACEUTICALS, INC.-2024US000240

PATIENT
  Age: 16 Year
  Sex: Female

DRUGS (1)
  1. OJEMDA [Suspect]
     Active Substance: TOVORAFENIB
     Indication: Brain neoplasm
     Dosage: 600 MG, 1/WEEK
     Route: 048
     Dates: start: 20240516

REACTIONS (3)
  - Decreased appetite [Not Recovered/Not Resolved]
  - Headache [Not Recovered/Not Resolved]
  - Fatigue [Not Recovered/Not Resolved]

NARRATIVE: CASE EVENT DATE: 20240516
